FAERS Safety Report 10274143 (Version 2)
Quarter: 2014Q3

REPORT INFORMATION
  Report Type: Spontaneous
  Country: JP (occurrence: JP)
  Receive Date: 20140702
  Receipt Date: 20140702
  Transmission Date: 20150326
  Serious: Yes (Death, Other)
  Sender: FDA-Public Use
  Company Number: JP-BRISTOL-MYERS SQUIBB COMPANY-20999264

PATIENT
  Age: 84 Year
  Sex: Male

DRUGS (8)
  1. ABILIFY [Suspect]
     Active Substance: ARIPIPRAZOLE
     Indication: PSYCHOMOTOR HYPERACTIVITY
     Dosage: 1DF-0.1%?3MG 23MAY14-25MAY14, 6MG 26MAY14-26MAY14.
     Route: 048
     Dates: start: 20140523, end: 20140526
  2. GRAMALIL [Concomitant]
     Active Substance: TIAPRIDE HYDROCHLORIDE
     Dates: start: 20140514, end: 20140519
  3. ABILIFY [Suspect]
     Active Substance: ARIPIPRAZOLE
     Indication: DEMENTIA WITH LEWY BODIES
     Dosage: 1DF-0.1%?3MG 23MAY14-25MAY14, 6MG 26MAY14-26MAY14.
     Route: 048
     Dates: start: 20140523, end: 20140526
  4. YOKUKANSAN [Concomitant]
     Active Substance: HERBALS
     Dates: start: 20140514, end: 20140519
  5. LEUCINE [Concomitant]
     Active Substance: LEUCINE
     Dates: start: 20140514, end: 20140526
  6. URIEF [Concomitant]
     Active Substance: SILODOSIN
     Dates: start: 20140514, end: 20140526
  7. DEPAS [Concomitant]
     Active Substance: ETIZOLAM
     Dates: start: 20140514, end: 20140519
  8. ALDACTONE [Concomitant]
     Active Substance: SPIRONOLACTONE
     Dates: start: 20140514, end: 20140526

REACTIONS (5)
  - Pneumonia [Fatal]
  - Off label use [Unknown]
  - Sedation [Fatal]
  - Circulatory collapse [Unknown]
  - Sepsis [Fatal]

NARRATIVE: CASE EVENT DATE: 2014
